FAERS Safety Report 21940625 (Version 1)
Quarter: 2023Q1

REPORT INFORMATION
  Report Type: Report from Study
  Country: US (occurrence: US)
  Receive Date: 20230201
  Receipt Date: 20230201
  Transmission Date: 20230418
  Serious: No
  Sender: FDA-Public Use
  Company Number: US-EXELIXIS-CABO-22052107

PATIENT
  Age: 79 Year
  Sex: Male

DRUGS (13)
  1. CABOMETYX [Suspect]
     Active Substance: CABOZANTINIB S-MALATE
     Indication: Renal cancer
     Dosage: 20 MG 2 TABLETS (40 MG) ON MONDAY AND FRIDAY, THEN 1 TABLET (20 MG) ON TUESDAY, WEDNESDAY, THURSDAY,
     Route: 048
     Dates: start: 20220215, end: 202207
  2. CABOMETYX [Suspect]
     Active Substance: CABOZANTINIB S-MALATE
     Dosage: 20 MG, QD
     Route: 048
  3. AMLODIPINE [Concomitant]
     Active Substance: AMLODIPINE BESYLATE
     Dosage: UNK
  4. ASPIRIN [Concomitant]
     Active Substance: ASPIRIN
     Dosage: UNK
  5. CARVEDILOL [Concomitant]
     Active Substance: CARVEDILOL
     Dosage: UNK
  6. FISH OIL [Concomitant]
     Active Substance: FISH OIL
     Dosage: UNK
  7. JANUMET [Concomitant]
     Active Substance: METFORMIN HYDROCHLORIDE\SITAGLIPTIN PHOSPHATE
     Dosage: UNK
  8. MENS 50+ CAP ADVANCED [Concomitant]
     Dosage: UNK
  9. METOPROLOL SUCCINATE [Concomitant]
     Active Substance: METOPROLOL SUCCINATE
     Dosage: UNK
  10. STOOL SOFTENER (DOCUSATE) [Concomitant]
     Active Substance: DOCUSATE
     Dosage: UNK
  11. TERAZOSIN [Concomitant]
     Active Substance: TERAZOSIN HYDROCHLORIDE
     Dosage: UNK
  12. LEVOTHYROXINE SODIUM [Concomitant]
     Active Substance: LEVOTHYROXINE SODIUM
     Dosage: UNK
  13. BACLOFEN [Concomitant]
     Active Substance: BACLOFEN
     Dosage: UNK

REACTIONS (9)
  - Depression [Unknown]
  - Abdominal discomfort [Unknown]
  - Skin ulcer [Unknown]
  - Diarrhoea [Unknown]
  - Fatigue [Unknown]
  - Taste disorder [Unknown]
  - Weight decreased [Unknown]
  - Decreased appetite [Unknown]
  - Inappropriate schedule of product administration [Unknown]

NARRATIVE: CASE EVENT DATE: 20220215
